FAERS Safety Report 10912122 (Version 1)
Quarter: 2015Q1

REPORT INFORMATION
  Report Type: Spontaneous
  Country: US (occurrence: None)
  Receive Date: 20150310
  Receipt Date: 20150310
  Transmission Date: 20150721
  Serious: Yes (Disabling)
  Sender: FDA-Public Use
  Company Number: None

PATIENT
  Age: 14 Year
  Sex: Female
  Weight: 58.97 kg

DRUGS (6)
  1. FLONASE [Concomitant]
     Active Substance: FLUTICASONE PROPIONATE
  2. PREVACID [Concomitant]
     Active Substance: LANSOPRAZOLE
  3. LEVAQUIN [Suspect]
     Active Substance: LEVOFLOXACIN
     Indication: SINUSITIS
     Dosage: 1 PILL
     Route: 048
  4. PROBIOTICS [Concomitant]
     Active Substance: PROBIOTICS NOS
  5. PREDNISONE. [Concomitant]
     Active Substance: PREDNISONE
  6. ASTHMANEX [Concomitant]

REACTIONS (4)
  - Asthenopia [None]
  - Arthralgia [None]
  - Neuropathy peripheral [None]
  - Joint crepitation [None]

NARRATIVE: CASE EVENT DATE: 20150309
